FAERS Safety Report 10307774 (Version 4)
Quarter: 2014Q3

REPORT INFORMATION
  Report Type: Spontaneous
  Country: US (occurrence: US)
  Receive Date: 20140716
  Receipt Date: 20140929
  Transmission Date: 20150326
  Serious: Yes (Hospitalization, Other)
  Sender: FDA-Public Use
  Company Number: US-TEVA-493624USA

PATIENT
  Age: 74 Year
  Sex: Male
  Weight: 77.18 kg

DRUGS (3)
  1. AZILECT [Suspect]
     Active Substance: RASAGILINE MESYLATE
     Dosage: 1 MILLIGRAM DAILY;
  2. AZILECT [Suspect]
     Active Substance: RASAGILINE MESYLATE
     Indication: PARKINSON^S DISEASE
     Dosage: 1 MILLIGRAM DAILY;
     Dates: start: 201406
  3. CARBIDOPA W/LEVODOPA [Concomitant]
     Active Substance: CARBIDOPA\LEVODOPA
     Indication: PARKINSON^S DISEASE
     Dosage: 6 DOSAGE FORMS DAILY; 25 MG/100 MG
     Route: 048

REACTIONS (20)
  - Feeling abnormal [Unknown]
  - Palpitations [Recovered/Resolved]
  - Psychomotor hyperactivity [Not Recovered/Not Resolved]
  - Muscle spasms [Not Recovered/Not Resolved]
  - Alopecia [Not Recovered/Not Resolved]
  - Adverse event [Unknown]
  - Fear [Unknown]
  - Hair texture abnormal [Not Recovered/Not Resolved]
  - Intentional product misuse [Unknown]
  - Euphoric mood [Unknown]
  - Condition aggravated [Unknown]
  - Malaise [Unknown]
  - Tremor [Not Recovered/Not Resolved]
  - Drug dependence [Unknown]
  - Feeling abnormal [Not Recovered/Not Resolved]
  - Drug effect increased [Unknown]
  - Insomnia [Unknown]
  - Arthralgia [Not Recovered/Not Resolved]
  - Drug ineffective [Unknown]
  - Inappropriate schedule of drug administration [Unknown]

NARRATIVE: CASE EVENT DATE: 20140706
